FAERS Safety Report 20479627 (Version 1)
Quarter: 2022Q1

REPORT INFORMATION
  Report Type: Spontaneous
  Country: BE (occurrence: BE)
  Receive Date: 20220216
  Receipt Date: 20220216
  Transmission Date: 20220423
  Serious: Yes (Hospitalization, Other)
  Sender: FDA-Public Use
  Company Number: BE-MYLANLABS-2022M1012321

PATIENT
  Age: 30 Year
  Sex: Female

DRUGS (17)
  1. PIPERACILLIN SODIUM\TAZOBACTAM SODIUM [Suspect]
     Active Substance: PIPERACILLIN SODIUM\TAZOBACTAM SODIUM
     Indication: Fracture infection
     Dosage: 4.5 GRAM, Q6H, DAY 4-70
     Route: 042
     Dates: start: 2016, end: 2016
  2. MEROPENEM [Suspect]
     Active Substance: MEROPENEM
     Indication: Fracture infection
     Dosage: UNK UNK, Q4H UP TO 2 G; DAY 4-70 AND DAY 175-709
     Route: 042
     Dates: start: 2016, end: 2018
  3. CLARITHROMYCIN [Suspect]
     Active Substance: CLARITHROMYCIN
     Indication: Fracture infection
     Dosage: 500 MILLIGRAM, BID DAYS 175-709
     Route: 048
     Dates: start: 2016, end: 2018
  4. AMOXICILLIN\CLAVULANIC ACID [Suspect]
     Active Substance: AMOXICILLIN\CLAVULANIC ACID
     Indication: Fracture infection
     Dosage: UNK
     Route: 065
     Dates: start: 2016
  5. FLUCLOXACILLIN [Suspect]
     Active Substance: FLUCLOXACILLIN
     Indication: Fracture infection
     Dosage: 2 GRAM, Q4H,DAYS 175-709
     Route: 042
     Dates: start: 2016, end: 2018
  6. SULFAMETHOXAZOLE\TRIMETHOPRIM [Suspect]
     Active Substance: SULFAMETHOXAZOLE\TRIMETHOPRIM
     Indication: Fracture infection
     Dosage: 1660 MILLIGRAM, BID DAYS 175-709
     Route: 048
     Dates: start: 2016, end: 2018
  7. RIFAMPIN [Suspect]
     Active Substance: RIFAMPIN
     Indication: Fracture infection
     Dosage: 450 MILLIGRAM, QD DAYS 175-709
     Route: 048
     Dates: start: 2016, end: 2018
  8. ETHAMBUTOL [Suspect]
     Active Substance: ETHAMBUTOL HYDROCHLORIDE
     Indication: Fracture infection
     Dosage: 1200 MILLIGRAM, QD DAYS 175-709
     Route: 048
     Dates: start: 2016, end: 2018
  9. VANCOMYCIN [Concomitant]
     Active Substance: VANCOMYCIN
     Indication: Fracture infection
     Dosage: 30 MILLIGRAM/KILOGRAM, QD,DAY 4-70
     Route: 042
     Dates: start: 2016, end: 2016
  10. COLISTIN [Concomitant]
     Active Substance: COLISTIN
     Indication: Fracture infection
     Dosage: UNK, QD ,UP TO 20 MIU; DAY 4-70; DAYS 71-84 AND DAYS 175-709
     Route: 042
     Dates: start: 2016, end: 2018
  11. AMIKACIN [Concomitant]
     Active Substance: AMIKACIN
     Indication: Fracture infection
     Dosage: 1800 MILLIGRAM, QD ~DAY 4-70
     Route: 042
     Dates: start: 2016, end: 2016
  12. FOSFOMYCIN [Concomitant]
     Active Substance: FOSFOMYCIN
     Indication: Fracture infection
     Dosage: 4 GRAM, Q4H,DAY 4-70 AND DAY 71-84
     Route: 042
     Dates: start: 2016, end: 2016
  13. GENTAMICIN [Concomitant]
     Active Substance: GENTAMICIN
     Indication: Fracture infection
     Dosage: 400 MILLIGRAM, QD DAY 4-70
     Route: 042
     Dates: start: 2016, end: 2016
  14. AMPHOTERICIN B [Concomitant]
     Active Substance: AMPHOTERICIN B
     Indication: Mucormycosis
     Dosage: 600 MILLIGRAM, QD DAY 20-62
     Route: 042
     Dates: start: 2016, end: 2016
  15. POSACONAZOLE [Concomitant]
     Active Substance: POSACONAZOLE
     Indication: Fracture infection
     Dosage: 200 MILLIGRAM, Q8H, DAY 20-62
     Route: 048
     Dates: start: 2016, end: 2016
  16. NIVOLUMAB [Concomitant]
     Active Substance: NIVOLUMAB
     Indication: Mucormycosis
     Dosage: UNK
     Route: 065
     Dates: start: 2016
  17. INTERFERON GAMMA [Concomitant]
     Active Substance: INTERFERON GAMMA
     Indication: Mucormycosis
     Dosage: UNK
     Route: 065
     Dates: start: 2016

REACTIONS (3)
  - Febrile neutropenia [Unknown]
  - Treatment failure [Unknown]
  - Drug ineffective [Unknown]

NARRATIVE: CASE EVENT DATE: 20160101
